FAERS Safety Report 6614959-5 (Version None)
Quarter: 2010Q1

REPORT INFORMATION
  Report Type: 
  Country: None (occurrence: None)
  Receive Date: 20100305
  Receipt Date: 20100220
  Transmission Date: 20100710
  Serious: No
  Sender: FDA-Public Use
  Company Number: US-JNJFOC-20100210184

PATIENT
  Sex: Female
  Weight: 73.48 kg

DRUGS (4)
  1. FENTANYL CITRATE [Suspect]
     Indication: NEURALGIA
     Route: 062
  2. FENTANYL CITRATE [Suspect]
     Indication: HERPES ZOSTER
     Route: 062
  3. STEROID INJECTION NOS [Concomitant]
     Indication: NEUROPATHY PERIPHERAL
     Route: 037
  4. NEURONTIN [Concomitant]
     Indication: BREAKTHROUGH PAIN
     Route: 048

REACTIONS (5)
  - CRYING [None]
  - GASTROINTESTINAL DISORDER [None]
  - HOT FLUSH [None]
  - WITHDRAWAL SYNDROME [None]
  - WRONG TECHNIQUE IN DRUG USAGE PROCESS [None]
